FAERS Safety Report 6672848-4 (Version None)
Quarter: 2010Q2

REPORT INFORMATION
  Report Type: 
  Country: None (occurrence: None)
  Receive Date: 20100408
  Receipt Date: 20100329
  Transmission Date: 20101027
  Serious: Yes (Hospitalization)
  Sender: FDA-Public Use
  Company Number: PHHY2010MX19836

PATIENT
  Sex: Female

DRUGS (1)
  1. EXFORGE [Suspect]
     Indication: HYPERTENSION
     Dosage: 1 TABLET (160/10  MG ) PER DAY
     Route: 048

REACTIONS (3)
  - HYSTERECTOMY [None]
  - UTERINE HAEMORRHAGE [None]
  - UTERINE LEIOMYOMA [None]
